FAERS Safety Report 5795213-0 (Version None)
Quarter: 2008Q2

REPORT INFORMATION
  Report Type: 
  Country: None (occurrence: None)
  Receive Date: 20080630
  Receipt Date: 20080618
  Transmission Date: 20081010
  Serious: Yes (Hospitalization, Other)
  Sender: FDA-Public Use
  Company Number: JP-SANOFI-SYNTHELABO-A01200806788

PATIENT
  Age: 66 Year
  Sex: Male

DRUGS (5)
  1. FENTANYL [Concomitant]
     Indication: ANAESTHESIA
     Dosage: 100-250 MCG
     Route: 065
  2. PROPOFOL [Concomitant]
     Indication: ANAESTHESIA
     Dosage: 3-5 MG/KG/HR
     Route: 065
  3. MILRINONE LACTATE [Suspect]
     Indication: CARDIOVASCULAR DISORDER
     Dosage: UNK
     Route: 042
  4. MIDAZOLAM HCL [Concomitant]
     Indication: ANAESTHESIA
     Dosage: 5-10 MG
     Route: 042
  5. MIDAZOLAM HCL [Suspect]
     Dosage: 5-10 MG
     Route: 065

REACTIONS (3)
  - ATRIAL FIBRILLATION [None]
  - RENAL FAILURE ACUTE [None]
  - RESPIRATORY FAILURE [None]
